FAERS Safety Report 6175536-6 (Version None)
Quarter: 2009Q2

REPORT INFORMATION
  Report Type: 
  Country: None (occurrence: None)
  Receive Date: 20090501
  Receipt Date: 20090420
  Transmission Date: 20091009
  Serious: Yes (Hospitalization)
  Sender: FDA-Public Use
  Company Number: CA-KINGPHARMUSA00001-K200900479

PATIENT
  Age: 73 Year
  Sex: Male

DRUGS (9)
  1. LEVOXYL [Suspect]
  2. WARFARIN [Suspect]
  3. ASPIRIN [Suspect]
  4. BETA BLOCKING AGENTS [Suspect]
  5. ACE INHIBITOR NOS [Suspect]
  6. STATINS [Suspect]
  7. LASIX [Suspect]
  8. AMIODARONE [Suspect]
  9. FERROUS GLUCONATE [Suspect]

REACTIONS (2)
  - COLITIS [None]
  - LYMPHOCYTIC INFILTRATION [None]
